FAERS Safety Report 10147283 (Version 1)
Quarter: 2014Q2

REPORT INFORMATION
  Report Type: Spontaneous
  Country: US (occurrence: US)
  Receive Date: 20140501
  Receipt Date: 20140501
  Transmission Date: 20141212
  Serious: No
  Sender: FDA-Public Use
  Company Number: US-SA-2014SA004003

PATIENT
  Age: 29 Year
  Sex: Female
  Weight: 55.5 kg

DRUGS (1)
  1. HECTOROL [Suspect]
     Indication: RENAL FAILURE CHRONIC
     Route: 042
     Dates: start: 20131231, end: 20131231

REACTIONS (4)
  - Hypersensitivity [Recovered/Resolved]
  - Feeling hot [Recovered/Resolved]
  - Dyspnoea [Recovered/Resolved]
  - Dizziness [Recovered/Resolved]
